FAERS Safety Report 11777734 (Version 1)
Quarter: 2015Q4

REPORT INFORMATION
  Report Type: Spontaneous
  Country: CH (occurrence: CH)
  Receive Date: 20151125
  Receipt Date: 20151125
  Transmission Date: 20160304
  Serious: Yes (Hospitalization, Other)
  Sender: FDA-Public Use
  Company Number: CH-PFIZER INC-2015395367

PATIENT
  Age: 65 Year
  Sex: Male

DRUGS (7)
  1. DIAMICRON MR [Concomitant]
     Active Substance: GLICLAZIDE
     Dosage: 60 MG, 1X/DAY
     Route: 048
  2. FLUOROURACIL TEVA [Suspect]
     Active Substance: FLUOROURACIL
     Indication: PANCREATIC CARCINOMA
     Dosage: 4500 MG, CYCLIC
     Route: 041
     Dates: start: 20141029
  3. CAMPTO [Suspect]
     Active Substance: IRINOTECAN
     Indication: PANCREATIC CARCINOMA
     Dosage: 330 MG, CYCLIC
     Route: 041
     Dates: start: 20141029
  4. CALCIUM FOLINATE [Suspect]
     Active Substance: LEUCOVORIN CALCIUM
     Indication: PANCREATIC CARCINOMA
     Dosage: 400 MG/M2, CYCLIC
     Route: 041
  5. GALVUMET [Concomitant]
     Active Substance: METFORMIN HYDROCHLORIDE\VILDAGLIPTIN
     Dosage: 1 DF, 2X/DAY
     Route: 048
  6. ENATEC [Concomitant]
     Active Substance: ENALAPRIL MALEATE
     Dosage: 1 DF, 1X/DAY
     Route: 048
  7. ELOXATIN [Suspect]
     Active Substance: OXALIPLATIN
     Indication: PANCREATIC CARCINOMA
     Dosage: 160 MG, CYCLIC
     Route: 041
     Dates: start: 20141029

REACTIONS (7)
  - Abdominal pain [Recovered/Resolved]
  - Pancreatitis acute [Recovered/Resolved]
  - Nausea [Recovered/Resolved]
  - Productive cough [None]
  - Pancreatic enzymes increased [Recovered/Resolved]
  - Vomiting [Recovered/Resolved]
  - Sputum purulent [Unknown]

NARRATIVE: CASE EVENT DATE: 201411
